FAERS Safety Report 5562810-7 (Version None)
Quarter: 2007Q4

REPORT INFORMATION
  Report Type: 
  Country: None (occurrence: None)
  Receive Date: 20071217
  Receipt Date: 20071210
  Transmission Date: 20080405
  Serious: Yes (Other)
  Sender: FDA-Public Use
  Company Number: CA-ASTRAZENECA-2007UW15883

PATIENT
  Age: 55 Year
  Sex: Female

DRUGS (4)
  1. ARIMIDEX [Suspect]
     Indication: BREAST CANCER
     Route: 048
     Dates: start: 20060301, end: 20070201
  2. ARIMIDEX [Suspect]
     Route: 048
     Dates: start: 20071101
  3. NOLVADEX [Suspect]
     Indication: BREAST CANCER
     Route: 048
     Dates: start: 20051101, end: 20051101
  4. FOSAMAX [Concomitant]
     Indication: BONE DISORDER
     Route: 048
     Dates: start: 20060927

REACTIONS (17)
  - AMNESIA [None]
  - ARTHRALGIA [None]
  - BREAST PAIN [None]
  - BURNING SENSATION [None]
  - EYE DISORDER [None]
  - FATIGUE [None]
  - HEADACHE [None]
  - INSOMNIA [None]
  - KNEE DEFORMITY [None]
  - MUSCLE SPASMS [None]
  - MUSCULAR WEAKNESS [None]
  - OEDEMA PERIPHERAL [None]
  - OSTEOPENIA [None]
  - PAIN IN EXTREMITY [None]
  - RASH [None]
  - RESORPTION BONE INCREASED [None]
  - WEIGHT DECREASED [None]
